FAERS Safety Report 6000173-3 (Version None)
Quarter: 2008Q4

REPORT INFORMATION
  Report Type: 
  Country: None (occurrence: None)
  Receive Date: 20081215
  Receipt Date: 20081210
  Transmission Date: 20090506
  Serious: Yes (Death, Life-Threatening, Hospitalization, Other)
  Sender: FDA-Public Use
  Company Number: US-GILEAD-2008-0018774

PATIENT
  Sex: Female
  Weight: 83.082 kg

DRUGS (10)
  1. LETAIRIS [Suspect]
     Indication: PULMONARY HYPERTENSION
     Route: 048
  2. METOPROLOL [Concomitant]
     Indication: ATRIAL FLUTTER
  3. PROGRAF [Concomitant]
     Indication: LUNG TRANSPLANT
  4. PREDNISONE TAB [Concomitant]
     Indication: LUNG TRANSPLANT
  5. CELLCEPT [Concomitant]
     Indication: LUNG TRANSPLANT
  6. ATOVAQUONE [Concomitant]
     Indication: LUNG TRANSPLANT
  7. MAGNESIUM OXIDE [Concomitant]
     Indication: BLOOD MAGNESIUM DECREASED
  8. VALCYTE [Concomitant]
     Indication: LUNG TRANSPLANT
  9. ITRACONAZOLE [Concomitant]
     Indication: FUNGAL INFECTION
  10. NEURONTIN [Concomitant]
     Indication: NEUROPATHY PERIPHERAL

REACTIONS (3)
  - PNEUMONIA [None]
  - RESPIRATORY FAILURE [None]
  - SEPSIS [None]
